FAERS Safety Report 11096067 (Version 2)
Quarter: 2015Q2

REPORT INFORMATION
  Report Type: Spontaneous
  Country: FR (occurrence: None)
  Receive Date: 20150505
  Receipt Date: 20150512
  Transmission Date: 20150821
  Serious: Yes (Hospitalization)
  Sender: FDA-Public Use
  Company Number: 2015FE01366

PATIENT
  Age: 12 Year
  Sex: Female

DRUGS (12)
  1. CIRCADIN [Suspect]
     Active Substance: MELATONIN
     Route: 048
  2. METFORMINE [Suspect]
     Active Substance: METFORMIN HYDROCHLORIDE
     Route: 048
  3. SABRIL [Suspect]
     Active Substance: VIGABATRIN
     Route: 048
     Dates: start: 2013
  4. NORDITROPINE [Suspect]
     Active Substance: SOMATROPIN
     Route: 058
  5. ZYMAD [Suspect]
     Active Substance: CHOLECALCIFEROL
     Dosage: 10 DROPS IN THE MORNING
     Route: 048
  6. QUESTRAN [Suspect]
     Active Substance: CHOLESTYRAMINE
     Route: 048
     Dates: start: 201402
  7. HYDROCORTISONE (HYDROCORTISONE) [Suspect]
     Active Substance: HYDROCORTISONE
     Route: 048
  8. DIFFU K (POTASSIUM CHLORIDE) (POTASSIUM CHLORIDE) [Suspect]
     Active Substance: POTASSIUM CHLORIDE
     Route: 048
  9. RITALINE [Suspect]
     Active Substance: METHYLPHENIDATE HYDROCHLORIDE
     Route: 048
  10. LEVOTHYROXINE SODIQUE [Suspect]
     Active Substance: LEVOTHYROXINE
     Dosage: 17 DROPS IN THE MORNING
     Route: 048
  11. MINIRIN [Suspect]
     Active Substance: DESMOPRESSIN ACETATE
     Indication: PRODUCT USED FOR UNKNOWN INDICATION
     Dosage: 450 UG DAILY (180UG-90UG-180UG)
  12. LAMICTAL [Suspect]
     Active Substance: LAMOTRIGINE
     Route: 048
     Dates: start: 2012

REACTIONS (2)
  - Hyponatraemia [None]
  - Epilepsy [None]

NARRATIVE: CASE EVENT DATE: 20150328
